FAERS Safety Report 18911270 (Version 1)
Quarter: 2021Q1

REPORT INFORMATION
  Report Type: Spontaneous
  Country: US (occurrence: US)
  Receive Date: 20210218
  Receipt Date: 20210218
  Transmission Date: 20210420
  Serious: No
  Sender: FDA-Public Use
  Company Number: US-PFIZER INC-2021122309

PATIENT

DRUGS (2)
  1. GABAPENTIN. [Suspect]
     Active Substance: GABAPENTIN
     Dosage: 800 MG, DAILY (800MG/DAY)
  2. GABAPENTIN. [Suspect]
     Active Substance: GABAPENTIN
     Dosage: 1600 MG, DAILY (1600MG/DAY)

REACTIONS (1)
  - Oedema [Recovered/Resolved]
